FAERS Safety Report 23267196 (Version 5)
Quarter: 2025Q1

REPORT INFORMATION
  Report Type: Report from Study
  Country: CN (occurrence: CN)
  Receive Date: 20231206
  Receipt Date: 20250328
  Transmission Date: 20250409
  Serious: Yes (Hospitalization)
  Sender: ROCHE
  Company Number: CN-ROCHE-3465008

PATIENT
  Age: 80 Year
  Sex: Female

DRUGS (44)
  1. POLATUZUMAB VEDOTIN [Suspect]
     Active Substance: POLATUZUMAB VEDOTIN
     Indication: Diffuse large B-cell lymphoma
     Route: 042
     Dates: start: 20230816
  2. RITUXIMAB [Suspect]
     Active Substance: RITUXIMAB
     Indication: Diffuse large B-cell lymphoma
     Route: 042
     Dates: start: 20230817, end: 20230817
  3. RITUXIMAB [Suspect]
     Active Substance: RITUXIMAB
     Route: 042
     Dates: start: 20230913, end: 20230913
  4. RITUXIMAB [Suspect]
     Active Substance: RITUXIMAB
     Route: 042
     Dates: start: 20231009, end: 20231009
  5. potassium chloride extended-release tablets [Concomitant]
     Route: 048
     Dates: start: 20230816, end: 20230819
  6. potassium chloride extended-release tablets [Concomitant]
     Route: 042
     Dates: start: 20230913, end: 20230914
  7. potassium chloride extended-release tablets [Concomitant]
     Route: 048
     Dates: start: 20230813, end: 20230814
  8. potassium chloride extended-release tablets [Concomitant]
     Route: 048
     Dates: start: 20231009, end: 20231009
  9. prednisone acetate tablet [Concomitant]
     Route: 048
     Dates: start: 20230913, end: 20230917
  10. Oral liquorice compound solution [Concomitant]
     Route: 048
     Dates: start: 20231217, end: 2024
  11. Oral liquorice compound solution [Concomitant]
     Route: 048
     Dates: start: 20231121, end: 20231121
  12. Cefaclor extended-release tablets [Concomitant]
     Route: 048
     Dates: start: 20231216, end: 20231218
  13. MUPIROCIN [Concomitant]
     Active Substance: MUPIROCIN
     Dates: start: 20240116
  14. Acetyl cysteine solution for inhalation [Concomitant]
     Route: 055
     Dates: start: 20231118, end: 20231123
  15. omeprazole enteric-coated capsule [Concomitant]
     Dates: start: 20240208, end: 2024
  16. omeprazole enteric-coated capsule [Concomitant]
     Dates: start: 20240208, end: 2024
  17. omeprazole enteric-coated capsule [Concomitant]
     Dosage: ENTERIC COATED TABLET
     Dates: start: 20231216, end: 20231219
  18. omeprazole enteric-coated capsule [Concomitant]
     Dosage: ENTERIC COATED TABLET
     Route: 042
     Dates: start: 20231114, end: 20231117
  19. omeprazole enteric-coated capsule [Concomitant]
     Dosage: ENTERIC COATED TABLET
     Route: 042
     Dates: start: 20231117, end: 20231118
  20. omeprazole enteric-coated capsule [Concomitant]
     Dosage: ENTERIC COATED TABLET
     Route: 042
     Dates: start: 20231118, end: 20231118
  21. SODIUM BICARBONATE [Concomitant]
     Active Substance: SODIUM BICARBONATE
     Route: 048
     Dates: start: 20230816, end: 20230819
  22. SODIUM BICARBONATE [Concomitant]
     Active Substance: SODIUM BICARBONATE
     Route: 048
     Dates: start: 20230813, end: 20230814
  23. SODIUM BICARBONATE [Concomitant]
     Active Substance: SODIUM BICARBONATE
     Route: 048
     Dates: start: 20231009, end: 20231010
  24. SODIUM BICARBONATE [Concomitant]
     Active Substance: SODIUM BICARBONATE
     Route: 048
     Dates: start: 20231216, end: 20231218
  25. SODIUM BICARBONATE [Concomitant]
     Active Substance: SODIUM BICARBONATE
     Route: 048
     Dates: start: 20230116, end: 20230118
  26. SODIUM BICARBONATE [Concomitant]
     Active Substance: SODIUM BICARBONATE
     Route: 048
     Dates: start: 20230208, end: 20230209
  27. TORSEMIDE [Concomitant]
     Active Substance: TORSEMIDE
     Route: 048
     Dates: start: 20230816, end: 20230818
  28. TORSEMIDE [Concomitant]
     Active Substance: TORSEMIDE
     Route: 048
     Dates: start: 20230913, end: 20230914
  29. TORSEMIDE [Concomitant]
     Active Substance: TORSEMIDE
     Route: 048
     Dates: start: 20231009, end: 20231010
  30. TORSEMIDE [Concomitant]
     Active Substance: TORSEMIDE
     Route: 048
     Dates: start: 20231009, end: 20231010
  31. TORSEMIDE [Concomitant]
     Active Substance: TORSEMIDE
     Route: 048
     Dates: start: 20240116, end: 20240118
  32. TORSEMIDE [Concomitant]
     Active Substance: TORSEMIDE
     Route: 048
     Dates: start: 20240208, end: 20240209
  33. PROMETHAZINE HYDROCHLORIDE [Concomitant]
     Active Substance: PROMETHAZINE HYDROCHLORIDE
     Route: 030
     Dates: start: 20231009, end: 20231009
  34. PROMETHAZINE HYDROCHLORIDE [Concomitant]
     Active Substance: PROMETHAZINE HYDROCHLORIDE
     Route: 030
     Dates: start: 20231216, end: 20231216
  35. PROMETHAZINE HYDROCHLORIDE [Concomitant]
     Active Substance: PROMETHAZINE HYDROCHLORIDE
     Route: 030
     Dates: start: 20230208, end: 20230208
  36. PROMETHAZINE HYDROCHLORIDE [Concomitant]
     Active Substance: PROMETHAZINE HYDROCHLORIDE
     Route: 030
     Dates: start: 20240116, end: 20240117
  37. PROMETHAZINE HYDROCHLORIDE [Concomitant]
     Active Substance: PROMETHAZINE HYDROCHLORIDE
     Route: 030
     Dates: start: 20240117, end: 20240117
  38. ACETYLCYSTEINE [Concomitant]
     Active Substance: ACETYLCYSTEINE
     Route: 055
     Dates: start: 20231118
  39. DEXAMETHASONE SODIUM PHOSPHATE [Concomitant]
     Active Substance: DEXAMETHASONE SODIUM PHOSPHATE
     Route: 042
     Dates: start: 20231009, end: 20231009
  40. DEXAMETHASONE SODIUM PHOSPHATE [Concomitant]
     Active Substance: DEXAMETHASONE SODIUM PHOSPHATE
     Route: 042
     Dates: start: 20230116, end: 20230116
  41. DEXAMETHASONE SODIUM PHOSPHATE [Concomitant]
     Active Substance: DEXAMETHASONE SODIUM PHOSPHATE
     Route: 042
     Dates: start: 20230208, end: 20230208
  42. DEXAMETHASONE SODIUM PHOSPHATE [Concomitant]
     Active Substance: DEXAMETHASONE SODIUM PHOSPHATE
     Route: 042
     Dates: start: 20231216, end: 20231216
  43. DEXAMETHASONE SODIUM PHOSPHATE [Concomitant]
     Active Substance: DEXAMETHASONE SODIUM PHOSPHATE
     Route: 042
     Dates: start: 20230913, end: 20230913
  44. LORATADINE [Concomitant]
     Active Substance: LORATADINE
     Dates: start: 20240208, end: 20240208

REACTIONS (3)
  - Pulmonary toxicity [Recovered/Resolved]
  - Pneumocystis jirovecii pneumonia [Recovered/Resolved]
  - Anaemia [Recovered/Resolved]

NARRATIVE: CASE EVENT DATE: 20231110
